FAERS Safety Report 10759527 (Version 1)
Quarter: 2015Q1

REPORT INFORMATION
  Report Type: Spontaneous
  Country: US (occurrence: None)
  Receive Date: 20150126
  Receipt Date: 20150126
  Transmission Date: 20150721
  Serious: Yes (Other)
  Sender: FDA-Public Use
  Company Number: US-MDCO-14-00113

PATIENT
  Age: 52 Year
  Sex: Female

DRUGS (1)
  1. ANGIOMAX [Suspect]
     Active Substance: BIVALIRUDIN
     Indication: PERCUTANEOUS CORONARY INTERVENTION
     Dosage: @ 08:47
     Route: 040
     Dates: start: 20140429, end: 20140429

REACTIONS (1)
  - Coronary artery thrombosis [None]

NARRATIVE: CASE EVENT DATE: 20140429
